FAERS Safety Report 6033377-4 (Version None)
Quarter: 2009Q1

REPORT INFORMATION
  Report Type: 
  Country: None (occurrence: None)
  Receive Date: 20090109
  Receipt Date: 20081230
  Transmission Date: 20090719
  Serious: Yes (Hospitalization)
  Sender: FDA-Public Use
  Company Number: FR-ABBOTT-02P-056-0206879-00

PATIENT
  Age: 43 Year
  Sex: Male

DRUGS (12)
  1. KALETRA [Suspect]
     Indication: HIV TEST POSITIVE
     Route: 048
     Dates: start: 20010101
  2. ATACAND [Suspect]
     Indication: DRUG USE FOR UNKNOWN INDICATION
     Route: 048
     Dates: start: 20010108, end: 20020617
  3. TAHOR [Suspect]
     Indication: HYPERTRIGLYCERIDAEMIA
     Route: 048
     Dates: start: 20020601
  4. TAHOR [Suspect]
     Indication: HYPERCHOLESTEROLAEMIA
  5. SUSTIVA [Suspect]
     Indication: HIV TEST POSITIVE
     Route: 048
     Dates: start: 20010101
  6. BACTRIM [Suspect]
     Indication: CEREBRAL TOXOPLASMOSIS
     Route: 048
  7. BACTRIM [Suspect]
     Indication: OPPORTUNISTIC INFECTION
  8. BACTRIM [Suspect]
     Indication: PROPHYLAXIS
  9. AMLOR [Suspect]
     Indication: HYPERTENSION
     Route: 048
     Dates: start: 19990622, end: 20020617
  10. MALOCIDE [Suspect]
     Indication: DRUG USE FOR UNKNOWN INDICATION
     Dates: start: 20010108
  11. DALACINE - PER [Suspect]
     Indication: DRUG USE FOR UNKNOWN INDICATION
     Route: 048
     Dates: start: 20010108
  12. LEDERFOLIN [Suspect]
     Indication: DRUG USE FOR UNKNOWN INDICATION
     Dates: start: 20010108

REACTIONS (1)
  - MYOCARDIAL INFARCTION [None]
